FAERS Safety Report 15189692 (Version 1)
Quarter: 2018Q3

REPORT INFORMATION
  Report Type: Spontaneous
  Country: JP (occurrence: JP)
  Receive Date: 20180724
  Receipt Date: 20180724
  Transmission Date: 20181010
  Serious: Yes (Other)
  Sender: FDA-Public Use
  Company Number: JP-INGENUS PHARMACEUTICALS, LLC-INF201807-000714

PATIENT
  Age: 50 Year
  Sex: Female

DRUGS (3)
  1. PACLITAXEL. [Suspect]
     Active Substance: PACLITAXEL
     Indication: NEOPLASM MALIGNANT
     Dosage: 6 COURSES WITH ADDITIONAL 3 COURSES AND THEN 9 MORE COURSES WAS GIVEN
  2. CISPLATIN. [Concomitant]
     Active Substance: CISPLATIN
     Dosage: 9  COURSES
  3. CARBOPLATIN. [Suspect]
     Active Substance: CARBOPLATIN
     Indication: NEOPLASM MALIGNANT
     Dosage: 6 COURSES WITH ADDITIONAL 3 COURSES

REACTIONS (1)
  - Anaphylactic shock [Recovered/Resolved]
